FAERS Safety Report 8477015 (Version 4)
Quarter: 2013Q3

REPORT INFORMATION
  Report Type: Report from Study
  Country: JP (occurrence: JP)
  Receive Date: 20120326
  Receipt Date: 20130726
  Transmission Date: 20140515
  Serious: Yes (Other)
  Sender: FDA-Public Use
  Company Number: JP-PFIZER INC-2012073618

PATIENT
  Age: 77 Year
  Sex: Female

DRUGS (13)
  1. TAKEPRON OD [Suspect]
     Indication: PROPHYLAXIS
     Dosage: 15 MG, 1X/DAY
     Route: 048
     Dates: start: 20100926
  2. LIPITOR [Suspect]
     Indication: LIPID METABOLISM DISORDER
     Dosage: 20 MG, 1X/DAY
     Route: 048
     Dates: start: 20100926
  3. ALOGLIPTIN BENZOATE [Suspect]
     Indication: TYPE 2 DIABETES MELLITUS
     Dosage: 12.5 MG, 1X/DAY
     Route: 048
     Dates: start: 20101126, end: 20101201
  4. ALOGLIPTIN BENZOATE [Suspect]
     Dosage: 6.25 MG, 1X/DAY
     Route: 048
     Dates: start: 20110302, end: 20110830
  5. BLOPRESS [Suspect]
     Indication: HYPERTENSION
     Dosage: 4 MG, 1X/DAY
     Route: 048
     Dates: start: 20101002, end: 20120405
  6. PLAVIX [Suspect]
     Indication: THROMBOSIS PROPHYLAXIS
     Dosage: 75 MG, 1X/DAY
     Route: 048
     Dates: start: 20100926
  7. FASTIC [Concomitant]
     Indication: TYPE 2 DIABETES MELLITUS
     Dosage: 60 MG, 3X/DAY
     Route: 048
     Dates: start: 20100928, end: 20110825
  8. GLUCOBAY [Concomitant]
     Indication: TYPE 2 DIABETES MELLITUS
     Dosage: 100 MG, 3X/DAY
     Route: 048
     Dates: start: 20101002
  9. BAYASPIRIN [Concomitant]
     Indication: THROMBOSIS PROPHYLAXIS
     Dosage: 100 MG, 1X/DAY
     Route: 048
     Dates: start: 20100926
  10. ARTIST [Concomitant]
     Indication: HYPERTENSION
     Dosage: 2.5 MG, 1X/DAY
     Route: 048
     Dates: start: 20101005
  11. LUPRAC [Concomitant]
     Indication: ACUTE MYOCARDIAL INFARCTION
     Dosage: 8 MG, 1X/DAY
     Route: 048
     Dates: start: 20101002, end: 20110908
  12. MAGMITT [Concomitant]
     Indication: CONSTIPATION
     Dosage: 330 MG, 3X/DAY
     Route: 048
     Dates: start: 20101004
  13. MERISLON [Concomitant]
     Indication: DIZZINESS
     Dosage: 6 MG, 3X/DAY
     Route: 048
     Dates: start: 20101029, end: 20110825

REACTIONS (1)
  - Interstitial lung disease [Recovering/Resolving]
